FAERS Safety Report 22275161 (Version 1)
Quarter: 2023Q2

REPORT INFORMATION
  Report Type: Spontaneous
  Country: CH (occurrence: CH)
  Receive Date: 20230502
  Receipt Date: 20230502
  Transmission Date: 20230721
  Serious: Yes (Other)
  Sender: FDA-Public Use
  Company Number: CH-LUNDBECK-DKLU3059980

PATIENT
  Sex: Female
  Weight: 54 kg

DRUGS (2)
  1. BRINTELLIX [Suspect]
     Active Substance: VORTIOXETINE HYDROBROMIDE
     Indication: Depression
     Dosage: 1 DOSAGE FORM, QD
     Route: 065
     Dates: start: 20191105
  2. LORAZEPAM [Suspect]
     Active Substance: LORAZEPAM
     Indication: Product used for unknown indication
     Dosage: UNK
     Route: 065

REACTIONS (20)
  - Choking [Recovered/Resolved]
  - Unresponsive to stimuli [Recovered/Resolved]
  - Suicidal ideation [Recovered/Resolved]
  - Muscle spasms [Recovered/Resolved]
  - Compulsions [Recovered/Resolved]
  - Condition aggravated [Recovered/Resolved]
  - Logorrhoea [Recovered/Resolved]
  - Brain fog [Recovered/Resolved]
  - Drug intolerance [Recovered/Resolved]
  - Dysstasia [Recovered/Resolved]
  - Feeling abnormal [Recovered/Resolved]
  - Patient dissatisfaction with treatment [Unknown]
  - Nausea [Recovered/Resolved]
  - Headache [Recovered/Resolved]
  - Vomiting [Recovered/Resolved]
  - Dizziness [Recovered/Resolved]
  - Anxiety [Recovered/Resolved]
  - Restlessness [Recovered/Resolved]
  - Retching [Recovered/Resolved]
  - Crying [Recovered/Resolved]
